FAERS Safety Report 9756055 (Version 1)
Quarter: 2013Q4

REPORT INFORMATION
  Report Type: Spontaneous
  Country: US (occurrence: US)
  Receive Date: 20131213
  Receipt Date: 20131213
  Transmission Date: 20140711
  Serious: No
  Sender: FDA-Public Use
  Company Number: US-GLAXOSMITHKLINE-A1028799A

PATIENT
  Age: 43 Year
  Sex: Female

DRUGS (2)
  1. NICOTINE PATCH UNKNOWN BRAND [Suspect]
     Indication: EX-TOBACCO USER
     Route: 062
     Dates: start: 2007
  2. NICORETTE WHITE ICE OTC 4MG [Suspect]
     Indication: EX-TOBACCO USER
     Dates: start: 201306

REACTIONS (2)
  - Drug ineffective [Unknown]
  - Dyspepsia [Recovered/Resolved]
